FAERS Safety Report 4609408-2 (Version None)
Quarter: 2005Q2

REPORT INFORMATION
  Report Type: 
  Country: None (occurrence: None)
  Receive Date: 20050225
  Receipt Date: 20050104
  Transmission Date: 20051028
  Serious: No
  Sender: FDA-Public Use
  Company Number: 2005US002340

PATIENT
  Age: 56 Year
  Sex: Female
  Weight: 80.7 kg

DRUGS (13)
  1. ALOXI [Suspect]
     Indication: PROPHYLAXIS OF NAUSEA AND VOMITING
     Dosage: 0.25 MG, SINGLE, INTRAVENOUS
     Route: 042
     Dates: start: 20050104, end: 20050104
  2. CYTOXAN [Suspect]
     Indication: CHEMOTHERAPY
     Dosage: 1200 MG, SINGLE, INTRAVENOUS
     Route: 042
     Dates: start: 20050104, end: 20050104
  3. CYTOXAN [Suspect]
  4. ADRIAMYCIN PFS [Suspect]
     Indication: CHEMOTHERAPY
     Dosage: 114 MG, SINGLE, IV BOLUS
     Route: 040
     Dates: start: 20050104, end: 20050104
  5. SYNTHROID [Concomitant]
  6. PRILOSEC [Concomitant]
  7. ZOLOFT [Concomitant]
  8. HYDROCHLOROTHIAZIDE [Concomitant]
  9. AMBIEN [Concomitant]
  10. ATIVAN [Concomitant]
  11. M.V.I. (DEXPANTHENOL, RETINOL, TOCOPHEROL, NICOTINAMIDE, ASCORBIC ACID [Concomitant]
  12. GLUCOSAMINE (GLUCOSAMINE) [Concomitant]
  13. ACCUPRIL [Concomitant]

REACTIONS (1)
  - DIPLOPIA [None]
